FAERS Safety Report 6381520-X (Version None)
Quarter: 2009Q3

REPORT INFORMATION
  Report Type: 
  Country: None (occurrence: None)
  Receive Date: 20090925
  Receipt Date: 20090909
  Transmission Date: 20100115
  Serious: Yes (Hospitalization)
  Sender: FDA-Public Use
  Company Number: F03200900105

PATIENT
  Age: 22 Year
  Sex: Female

DRUGS (37)
  1. OFORTA [Suspect]
     Indication: T-CELL LYMPHOMA STAGE IV
     Dosage: SEE IMAGE; ORAL
     Route: 048
     Dates: start: 20080206, end: 20080210
  2. OFORTA [Suspect]
     Indication: T-CELL LYMPHOMA STAGE IV
     Dosage: SEE IMAGE; ORAL
     Route: 048
     Dates: start: 20080318, end: 20080320
  3. OFORTA [Suspect]
     Indication: T-CELL LYMPHOMA STAGE IV
     Dosage: SEE IMAGE; ORAL
     Route: 048
     Dates: start: 20080513, end: 20080515
  4. OFORTA [Suspect]
     Indication: T-CELL LYMPHOMA STAGE IV
     Dosage: SEE IMAGE; ORAL
     Route: 048
     Dates: start: 20080529, end: 20080529
  5. OFORTA [Suspect]
     Indication: T-CELL LYMPHOMA STAGE IV
     Dosage: SEE IMAGE; ORAL
     Route: 048
     Dates: start: 20080527, end: 20080601
  6. OFORTA [Suspect]
     Indication: T-CELL LYMPHOMA STAGE IV
     Dosage: SEE IMAGE; ORAL
     Route: 048
     Dates: start: 20080621, end: 20080715
  7. OFORTA [Suspect]
     Indication: CORD BLOOD TRANSPLANT THERAPY
     Dosage: SEE IMAGE; INTRAVENOUS NOS
     Route: 042
  8. OFORTA [Suspect]
     Indication: CYTOMEGALOVIRUS VIRAEMIA
     Dosage: SEE IMAGE; INTRAVENOUS NOS
     Route: 042
  9. OFORTA [Suspect]
     Indication: T-CELL LYMPHOMA STAGE IV
     Dosage: SEE IMAGE; INTRAVENOUS NOS
     Route: 042
  10. DENOSINE ^FAREAST^ (ADENOSINE TRIPHOSPHATE- UNKNOWN [Suspect]
  11. NOVANTRONE [Concomitant]
  12. ALLELOCK (OLOPATADINE HYDROCHLORIDE) [Concomitant]
  13. SUPRECUR (BUSERELIN ACETATE) [Concomitant]
  14. URSO 250 [Concomitant]
  15. NEUQUINON (UBIDECARENONE) [Concomitant]
  16. BAKTAR [Concomitant]
  17. HIBON (RIBOFLAVIN TETRABUTYRATE) [Concomitant]
  18. DEPAS (ETIZOLAM) [Concomitant]
  19. CELLCEPT [Concomitant]
  20. FAMOTIDINE [Concomitant]
  21. PRODIF (FLUCONAZOLE) [Concomitant]
  22. ACYCLOVIR [Concomitant]
  23. VENILON (UMMUNOGLOBULIN HUMAN NORMAL) [Concomitant]
  24. LANSOPRAZOLE [Concomitant]
  25. FIRSTCIN BAG S (CEFOZOPRAN HYDROCHLORIDE) [Concomitant]
  26. GRANISETRON  HCL [Concomitant]
  27. NEUPOGEN [Concomitant]
  28. KEITEN (CEFPIROME SULFATE) [Concomitant]
  29. LASIX [Concomitant]
  30. OMEGACIN [Concomitant]
  31. SANDIMMUM (CICLOSPORIN) [Concomitant]
  32. NEORAL [Concomitant]
  33. CEFAZOLIN SODIUM [Concomitant]
  34. ZOVIRAX [Concomitant]
  35. ITRACONAZOLE [Concomitant]
  36. CONCENTRATED RED CELLS (RED BLOOD CELLS, CONCENTRATED) [Concomitant]
  37. PLATELET CONCENTRATE (PLATELETS, HUMAN BLOOD) [Concomitant]

REACTIONS (4)
  - CYTOMEGALOVIRUS VIRAEMIA [None]
  - HEPATIC FUNCTION ABNORMAL [None]
  - HYPERURICAEMIA [None]
  - RENAL IMPAIRMENT [None]
